FAERS Safety Report 15180954 (Version 1)
Quarter: 2018Q3

REPORT INFORMATION
  Report Type: Spontaneous
  Country: US (occurrence: US)
  Receive Date: 20180723
  Receipt Date: 20180723
  Transmission Date: 20181010
  Serious: Yes (Hospitalization, Other)
  Sender: FDA-Public Use
  Company Number: US-JNJFOC-20180723082

PATIENT
  Age: 44 Year
  Sex: Male

DRUGS (1)
  1. INVOKANA [Suspect]
     Active Substance: CANAGLIFLOZIN
     Indication: TYPE 2 DIABETES MELLITUS
     Route: 048

REACTIONS (7)
  - Osteomyelitis [Unknown]
  - Diabetic foot [Unknown]
  - Diabetic ulcer [Unknown]
  - Diabetic foot infection [Unknown]
  - Blister [Unknown]
  - Toe amputation [Unknown]
  - Abscess limb [Unknown]

NARRATIVE: CASE EVENT DATE: 201608
